FAERS Safety Report 8831338 (Version 1)
Quarter: 2012Q4

REPORT INFORMATION
  Report Type: 
  Country: ZA (occurrence: ZA)
  Receive Date: 20121009
  Receipt Date: 20121009
  Transmission Date: 20130627
  Serious: Yes (Hospitalization)
  Sender: FDA-Public Use
  Company Number: ZA-SANOFI-AVENTIS-2012SA072681

PATIENT
  Age: 61 Year
  Sex: Male

DRUGS (4)
  1. LANTUS [Suspect]
     Indication: TYPE II DIABETES MELLITUS
     Route: 058
     Dates: start: 20111028
  2. METFORMIN [Concomitant]
     Indication: TYPE 2 DIABETES MELLITUS
     Route: 048
     Dates: start: 2007
  3. ADALAT XL [Concomitant]
     Indication: HYPERTENSION
     Dosage: mane
     Route: 048
     Dates: start: 2007
  4. PERINDOPRIL [Concomitant]
     Indication: HYPERTENSION
     Dosage: dose: 1 daily
     Dates: start: 2007

REACTIONS (3)
  - Gastric cancer [Recovering/Resolving]
  - Vomiting [Recovering/Resolving]
  - Dysphagia [Recovering/Resolving]
